FAERS Safety Report 26110782 (Version 1)
Quarter: 2025Q4

REPORT INFORMATION
  Report Type: Report from Study
  Country: CA (occurrence: CA)
  Receive Date: 20251202
  Receipt Date: 20251202
  Transmission Date: 20260117
  Serious: Yes (Hospitalization)
  Sender: SAMSUNG BIOEPIS
  Company Number: CA-SAMSUNG BIOEPIS-SB-2025-39807

PATIENT
  Age: 88 Year
  Sex: Male

DRUGS (1)
  1. BYOOVIZ [Suspect]
     Active Substance: RANIBIZUMAB-NUNA
     Indication: Neovascular age-related macular degeneration
     Dosage: 10MG/ML;
     Dates: start: 20240417

REACTIONS (1)
  - Pyrexia [Unknown]

NARRATIVE: CASE EVENT DATE: 20251119
